FAERS Safety Report 4578502-7 (Version None)
Quarter: 2005Q1

REPORT INFORMATION
  Report Type: 
  Country: None (occurrence: None)
  Receive Date: 20050204
  Receipt Date: 20050204
  Transmission Date: 20050727
  Serious: Yes (Life-Threatening)
  Sender: FDA-Public Use
  Company Number: None

PATIENT
  Sex: Male
  Weight: 63.05 kg

DRUGS (2)
  1. DAUNORUBICIN HCL [Suspect]
     Indication: ERYTHROLEUKAEMIA
     Dosage: 45 MG/M2    QD D 1-3   INTRAVENOU
     Route: 042
     Dates: start: 20050116, end: 20050118
  2. CYTARABINE [Suspect]
     Indication: ERYTHROLEUKAEMIA
     Dosage: 100MG/M2   QD,  D1-7    INTRAVENOU
     Route: 042
     Dates: start: 20050116, end: 20050122

REACTIONS (5)
  - BLOOD BILIRUBIN INCREASED [None]
  - DEEP VEIN THROMBOSIS [None]
  - FEBRILE NEUTROPENIA [None]
  - PLEURAL EFFUSION [None]
  - STAPHYLOCOCCAL SEPSIS [None]
